FAERS Safety Report 10010810 (Version 2)
Quarter: 2014Q1

REPORT INFORMATION
  Report Type: Spontaneous
  Country: IT (occurrence: None)
  Receive Date: 20140311
  Receipt Date: 20140318
  Transmission Date: 20141002
  Serious: Yes (Hospitalization)
  Sender: FDA-Public Use
  Company Number: AUR-APL-2014-02524

PATIENT
  Age: 86 Year
  Sex: Female

DRUGS (5)
  1. GABAPENTIN [Suspect]
     Indication: SEDATION
     Dosage: (900 MG, 1 D)
     Route: 048
     Dates: start: 20140122, end: 20140124
  2. SEROQUEL [Suspect]
     Indication: SEDATION
     Dosage: (50 MG, 1 D)
     Route: 048
     Dates: start: 20140122, end: 20140124
  3. TEGRETOL [Suspect]
     Indication: SEDATION
     Dosage: (800 MG, 1 D)
     Route: 048
     Dates: start: 20140122, end: 20140124
  4. PLAVIX (CLOPIDOGREL BISULFATE) (CLOPIDOGREL BISULFATE) [Concomitant]
  5. ACETYLSALICYLIC ACID (ACETYLSALICYLIC ACID) [Concomitant]

REACTIONS (6)
  - Altered state of consciousness [None]
  - Sopor [None]
  - Aspartate aminotransferase increased [None]
  - Blood creatine phosphokinase increased [None]
  - Off label use [None]
  - Sedation [None]
